FAERS Safety Report 7610238-8 (Version None)
Quarter: 2011Q3

REPORT INFORMATION
  Report Type: 
  Country: None (occurrence: None)
  Receive Date: 20110713
  Receipt Date: 20110713
  Transmission Date: 20111222
  Serious: No
  Sender: FDA-Public Use
  Company Number: None

PATIENT
  Sex: Female

DRUGS (2)
  1. LORTAB [Suspect]
     Dosage: LORTAB QID PO
     Route: 048
  2. DURAGESIC-75 [Suspect]
     Dosage: DUNGEON Q72 TOPICAL
     Route: 061

REACTIONS (2)
  - DIARRHOEA [None]
  - RASH [None]
